FAERS Safety Report 6568657-7 (Version None)
Quarter: 2010Q1

REPORT INFORMATION
  Report Type: 
  Country: None (occurrence: None)
  Receive Date: 20100203
  Receipt Date: 20100121
  Transmission Date: 20100710
  Serious: Yes (Hospitalization)
  Sender: FDA-Public Use
  Company Number: PHHY2009JP50177

PATIENT
  Sex: Male
  Weight: 60 kg

DRUGS (10)
  1. ZOMETA [Suspect]
     Indication: METASTASES TO BONE
     Dosage: 4MG PER ADMINISTRATION
     Route: 041
     Dates: start: 20060629, end: 20091001
  2. ZOMETA [Suspect]
     Indication: BONE PAIN
  3. AREDIA [Suspect]
     Indication: METASTASES TO BONE
     Dosage: UNK
     Route: 042
     Dates: start: 20050701, end: 20060623
  4. DOCETAXEL [Concomitant]
     Indication: NEOPLASM MALIGNANT
     Dosage: UNK
     Route: 048
  5. DECADRON [Concomitant]
     Indication: PROSTATE CANCER
     Dosage: 1 MG, UNK
     Route: 048
     Dates: start: 20080712
  6. LASIX [Concomitant]
     Indication: PLEURAL EFFUSION
     Dosage: 20 MG, UNK
     Route: 048
     Dates: start: 20071102
  7. ALDACTONE [Concomitant]
     Indication: PLEURAL EFFUSION
     Dosage: 25 MG, UNK
     Route: 048
     Dates: start: 20071102
  8. MUCOSTA [Concomitant]
     Indication: ABDOMINAL PAIN UPPER
     Dosage: 200 MG, UNK
     Route: 048
     Dates: start: 20071102
  9. ZYLORIC [Concomitant]
     Indication: HYPERURICAEMIA
     Dosage: 200 MG, UNK
     Route: 048
     Dates: start: 20071102
  10. ZOLADEX [Concomitant]
     Indication: PROSTATE CANCER
     Dosage: 1 DF, UNK
     Route: 058
     Dates: start: 20050627

REACTIONS (2)
  - OSTEONECROSIS [None]
  - TOOTHACHE [None]
